FAERS Safety Report 16263282 (Version 1)
Quarter: 2019Q2

REPORT INFORMATION
  Report Type: Spontaneous
  Country: SE (occurrence: SE)
  Receive Date: 20190502
  Receipt Date: 20190502
  Transmission Date: 20190711
  Serious: Yes (Hospitalization)
  Sender: FDA-Public Use
  Company Number: SE-TEVA-2019-SE-1044754

PATIENT
  Sex: Female

DRUGS (3)
  1. DIMOR [Suspect]
     Active Substance: LOPERAMIDE
     Dosage: ^32 TABL^
     Route: 048
  2. LYRICA [Suspect]
     Active Substance: PREGABALIN
     Route: 048
  3. RITALIN [Suspect]
     Active Substance: METHYLPHENIDATE HYDROCHLORIDE
     Route: 048

REACTIONS (4)
  - Intentional self-injury [Unknown]
  - Intentional overdose [Unknown]
  - Formication [Unknown]
  - Dizziness [Unknown]

NARRATIVE: CASE EVENT DATE: 201401
